FAERS Safety Report 12642003 (Version 2)
Quarter: 2016Q3

REPORT INFORMATION
  Report Type: Spontaneous
  Country: CA (occurrence: CA)
  Receive Date: 20160810
  Receipt Date: 20160822
  Transmission Date: 20161109
  Serious: Yes (Hospitalization)
  Sender: FDA-Public Use
  Company Number: CA-BRISTOL-MYERS SQUIBB COMPANY-BMS-2016-064512

PATIENT

DRUGS (3)
  1. VOLIBRIS [Suspect]
     Active Substance: AMBRISENTAN
     Indication: PULMONARY ARTERIAL HYPERTENSION
     Dosage: 10 MG, QD
     Route: 065
  2. SILDENAFIL CITRATE. [Concomitant]
     Active Substance: SILDENAFIL CITRATE
     Indication: PRODUCT USED FOR UNKNOWN INDICATION
     Route: 065
  3. COUMADIN [Suspect]
     Active Substance: WARFARIN SODIUM
     Indication: PRODUCT USED FOR UNKNOWN INDICATION
     Route: 065

REACTIONS (8)
  - Fall [Recovered/Resolved]
  - Ankle fracture [Recovered/Resolved]
  - Hypoaesthesia [Recovered/Resolved]
  - Rhinorrhoea [Recovered/Resolved]
  - Balance disorder [Recovered/Resolved]
  - Nasopharyngitis [Recovered/Resolved]
  - Ocular hyperaemia [Recovered/Resolved]
  - Oropharyngeal pain [Recovered/Resolved]
